FAERS Safety Report 20155202 (Version 1)
Quarter: 2021Q4

REPORT INFORMATION
  Report Type: Spontaneous
  Country: US (occurrence: US)
  Receive Date: 20211207
  Receipt Date: 20211207
  Transmission Date: 20220303
  Serious: No
  Sender: FDA-Public Use
  Company Number: US-NOVARTISTESTPH-NVSC2021US279563

PATIENT
  Sex: Female

DRUGS (1)
  1. XIIDRA [Suspect]
     Active Substance: LIFITEGRAST
     Indication: Product used for unknown indication
     Dosage: 0.2 ML, QD
     Route: 065

REACTIONS (4)
  - Heart rate increased [Unknown]
  - Eye irritation [Unknown]
  - Dyspnoea [Unknown]
  - Headache [Unknown]
